FAERS Safety Report 11080805 (Version 2)
Quarter: 2015Q4

REPORT INFORMATION
  Report Type: Spontaneous
  Country: IT (occurrence: IT)
  Receive Date: 20150501
  Receipt Date: 20151008
  Transmission Date: 20160304
  Serious: Yes (Other)
  Sender: FDA-Public Use
  Company Number: IT-ACCORD-030347

PATIENT
  Age: 74 Year
  Sex: Female

DRUGS (3)
  1. GEMCITABINE ACCORD [Suspect]
     Active Substance: GEMCITABINE HYDROCHLORIDE
     Indication: ADENOCARCINOMA PANCREAS
     Dosage: STREANGTH: 1 G
     Route: 042
     Dates: start: 20150102, end: 20150409
  2. FARMORUBICINA PFIZER [Suspect]
     Active Substance: EPIRUBICIN HYDROCHLORIDE
     Indication: ADENOCARCINOMA PANCREAS
     Dosage: STRENGTH: 50 MG/25 ML
     Route: 042
     Dates: start: 20150102, end: 20150409
  3. CAPECITABINA MEDAC [Suspect]
     Active Substance: CAPECITABINE
     Indication: ADENOCARCINOMA PANCREAS
     Dosage: STRENGTH: 500 MG
     Route: 048
     Dates: start: 20150102, end: 20150415

REACTIONS (3)
  - Neutropenia [Unknown]
  - Anaemia [Unknown]
  - Leukopenia [Unknown]

NARRATIVE: CASE EVENT DATE: 20150415
